FAERS Safety Report 11891457 (Version 1)
Quarter: 2016Q1

REPORT INFORMATION
  Report Type: Spontaneous
  Country: US (occurrence: US)
  Receive Date: 20160106
  Receipt Date: 20160106
  Transmission Date: 20160526
  Serious: No
  Sender: FDA-Public Use
  Company Number: US-ROXANE LABORATORIES, INC.-2016-RO-00004RO

PATIENT
  Age: 70 Year
  Sex: Female

DRUGS (2)
  1. FASLODEX [Concomitant]
     Active Substance: FULVESTRANT
     Indication: ANTIOESTROGEN THERAPY
     Route: 065
  2. LETROZOLE. [Suspect]
     Active Substance: LETROZOLE
     Indication: ANTIOESTROGEN THERAPY
     Dosage: 2.5 MG
     Route: 065

REACTIONS (1)
  - Feeling hot [Not Recovered/Not Resolved]
